FAERS Safety Report 9308371 (Version 2)
Quarter: 2013Q2

REPORT INFORMATION
  Report Type: Spontaneous
  Country: LV (occurrence: LV)
  Receive Date: 20130524
  Receipt Date: 20130603
  Transmission Date: 20140414
  Serious: Yes (Hospitalization)
  Sender: FDA-Public Use
  Company Number: LV-GLAXOSMITHKLINE-B0894037A

PATIENT
  Age: 73 Year
  Sex: Male

DRUGS (1)
  1. COMBODART [Suspect]
     Indication: BENIGN PROSTATIC HYPERPLASIA
     Route: 048
     Dates: start: 201102, end: 20130509

REACTIONS (5)
  - Prostate cancer [Not Recovered/Not Resolved]
  - Prostate cancer metastatic [Unknown]
  - Urinary tract infection [Unknown]
  - Urinary retention [Unknown]
  - Urodynamics measurement abnormal [Unknown]
